FAERS Safety Report 10373751 (Version 1)
Quarter: 2014Q1

REPORT INFORMATION
  Report Type: Spontaneous
  Country: US (occurrence: None)
  Receive Date: 20140306
  Receipt Date: 20140306
  Transmission Date: 20141002
  Serious: Yes (Hospitalization)
  Sender: FDA-Public Use
  Company Number: 163-21880-13052245

PATIENT
  Age: 91 Year
  Sex: Male

DRUGS (5)
  1. REVLIMID (LENALIDOMIDE) (5 MILLIGRAM, CAPSULES) [Suspect]
     Indication: MYELODYSPLASTIC SYNDROME
     Dosage: 1 IN 1 D
     Route: 048
     Dates: start: 20130220
  2. VIDAZA (AZACITIDINE) [Concomitant]
  3. PROTONIX DR [Concomitant]
  4. FERROUS SULFATE [Concomitant]
  5. ALBUTEROL (SALBUTAMOL) [Concomitant]

REACTIONS (2)
  - Pneumonia [None]
  - Secondary immunodeficiency [None]
